FAERS Safety Report 21929872 (Version 1)
Quarter: 2023Q1

REPORT INFORMATION
  Report Type: Spontaneous
  Country: US (occurrence: US)
  Receive Date: 20230131
  Receipt Date: 20230131
  Transmission Date: 20230417
  Serious: No
  Sender: FDA-Public Use
  Company Number: US-BEH-2023154678

PATIENT
  Sex: Male

DRUGS (11)
  1. HIZENTRA [Suspect]
     Active Substance: HUMAN IMMUNOGLOBULIN G
     Indication: Immunodeficiency common variable
     Dosage: 20 GRAM, QW
     Route: 058
     Dates: start: 20211106
  2. BACLOFEN [Concomitant]
     Active Substance: BACLOFEN
  3. COLACE [Concomitant]
     Active Substance: DOCUSATE SODIUM
  4. EPINEPHRINE [Concomitant]
     Active Substance: EPINEPHRINE
  5. KENALOG [Concomitant]
     Active Substance: TRIAMCINOLONE ACETONIDE
  6. MS CONTIN [Concomitant]
     Active Substance: MORPHINE SULFATE
  7. VITAMINS NOS [Concomitant]
     Active Substance: VITAMINS
  8. OXYCODONE [Concomitant]
     Active Substance: OXYCODONE
  9. TIZANIDINE [Concomitant]
     Active Substance: TIZANIDINE
  10. UBRELVY [Concomitant]
     Active Substance: UBROGEPANT
  11. GALCANEZUMAB [Concomitant]
     Active Substance: GALCANEZUMAB

REACTIONS (1)
  - Fatigue [Unknown]
